FAERS Safety Report 21258674 (Version 1)
Quarter: 2022Q3

REPORT INFORMATION
  Report Type: Spontaneous
  Country: US (occurrence: None)
  Receive Date: 20220825
  Receipt Date: 20220825
  Transmission Date: 20221027
  Serious: Yes (Disabling, Other)
  Sender: FDA-Public Use
  Company Number: None

PATIENT
  Age: 72 Year
  Sex: Male
  Weight: 99 kg

DRUGS (24)
  1. AZELASTINE [Suspect]
     Active Substance: AZELASTINE
     Indication: COVID-19
     Dosage: OTHER QUANTITY : 2 SPRAY(S);?
     Route: 055
     Dates: start: 20220727, end: 20220825
  2. AZELASTINE [Suspect]
     Active Substance: AZELASTINE
     Indication: Cough
  3. AZELASTINE [Suspect]
     Active Substance: AZELASTINE
     Indication: Rhinorrhoea
  4. AZELASTINE [Suspect]
     Active Substance: AZELASTINE
     Indication: Upper-airway cough syndrome
  5. KEPPRA [Concomitant]
     Active Substance: LEVETIRACETAM
  6. CELLCEPT [Concomitant]
     Active Substance: MYCOPHENOLATE MOFETIL
  7. PREDNISONE [Concomitant]
     Active Substance: PREDNISONE
  8. HYDROCHLOROTHIAZIDE [Concomitant]
     Active Substance: HYDROCHLOROTHIAZIDE
  9. FLOMAX [Concomitant]
     Active Substance: TAMSULOSIN HYDROCHLORIDE
  10. UNSPECIFIED INGREDIENT [Concomitant]
     Active Substance: UNSPECIFIED INGREDIENT
  11. FINASTERIDE [Concomitant]
     Active Substance: FINASTERIDE
  12. TOBRADEX [Concomitant]
     Active Substance: DEXAMETHASONE\TOBRAMYCIN
  13. ACETAMINOPHEN [Concomitant]
     Active Substance: ACETAMINOPHEN
  14. IBUPROFEN [Concomitant]
     Active Substance: IBUPROFEN
  15. BIOTIN [Concomitant]
     Active Substance: BIOTIN
  16. CALCIUM CARBONATE [Concomitant]
     Active Substance: CALCIUM CARBONATE
  17. Culturelle Digestive Health [Concomitant]
  18. VITAMIN D3 [Concomitant]
     Active Substance: CHOLECALCIFEROL
  19. DEXTROSE [Concomitant]
     Active Substance: DEXTROSE
  20. MINOCYCLINE [Concomitant]
     Active Substance: MINOCYCLINE HYDROCHLORIDE
  21. VITAMINS [Concomitant]
     Active Substance: VITAMINS
  22. Preservision Areds-2 [Concomitant]
  23. VITAMIN A [Concomitant]
     Active Substance: VITAMIN A
  24. VITAMIN C [Concomitant]
     Active Substance: ASCORBIC ACID

REACTIONS (6)
  - Eye pain [None]
  - Ocular discomfort [None]
  - Sinusitis [None]
  - Hordeolum [None]
  - Oral herpes [None]
  - Inflammation [None]

NARRATIVE: CASE EVENT DATE: 20220727
